FAERS Safety Report 6263103-5 (Version None)
Quarter: 2009Q3

REPORT INFORMATION
  Report Type: 
  Country: None (occurrence: None)
  Receive Date: 20090710
  Receipt Date: 20071219
  Transmission Date: 20100115
  Serious: Yes (Other)
  Sender: FDA-Public Use
  Company Number: US-ASTRAZENECA-2006UW24914

PATIENT
  Age: 38 Year
  Sex: Female
  Weight: 56.7 kg

DRUGS (6)
  1. SEROQUEL [Suspect]
     Indication: SCHIZOPHRENIA
     Dosage: 25-400 MG
     Route: 048
     Dates: start: 20010411
  2. SEROQUEL [Suspect]
     Indication: BIPOLAR DISORDER
     Dosage: 25-400 MG
     Route: 048
     Dates: start: 20010411
  3. SEROQUEL [Suspect]
     Indication: DEPRESSION
     Dosage: 25-400 MG
     Route: 048
     Dates: start: 20010411
  4. SEROQUEL [Suspect]
     Route: 048
     Dates: start: 20030513
  5. SEROQUEL [Suspect]
     Route: 048
     Dates: start: 20030513
  6. SEROQUEL [Suspect]
     Route: 048
     Dates: start: 20030513

REACTIONS (2)
  - DIABETES MELLITUS [None]
  - DIABETIC NEUROPATHY [None]
